FAERS Safety Report 16595327 (Version 1)
Quarter: 2019Q3

REPORT INFORMATION
  Report Type: Report from Study
  Country: None (occurrence: US)
  Receive Date: 20190718
  Receipt Date: 20190718
  Transmission Date: 20191004
  Serious: Yes (Other)
  Sender: FDA-Public Use
  Company Number: US-ABBVIE-19K-163-2852715-00

PATIENT
  Age: 67 Year
  Sex: Female

DRUGS (2)
  1. LEVOTHYROXINE. [Concomitant]
     Active Substance: LEVOTHYROXINE
     Indication: PRODUCT USED FOR UNKNOWN INDICATION
     Route: 048
  2. CREON [Suspect]
     Active Substance: PANCRELIPASE AMYLASE\PANCRELIPASE LIPASE\PANCRELIPASE PROTEASE
     Indication: PRODUCT USED FOR UNKNOWN INDICATION
     Dosage: 1 QUANTITY IN MORNING ON AN EMPTY STOMACH FROM MONDAY TO SATURDAY 0.5 TAB ON SUNDAY
     Route: 048

REACTIONS (5)
  - Hiatus hernia [Unknown]
  - Cholecystectomy [Unknown]
  - Foot deformity [Unknown]
  - Depression [Unknown]
  - Diarrhoea [Unknown]

NARRATIVE: CASE EVENT DATE: 201711
